FAERS Safety Report 4407196-6 (Version None)
Quarter: 2004Q3

REPORT INFORMATION
  Report Type: 
  Country: None (occurrence: None)
  Receive Date: 20040723
  Receipt Date: 20040723
  Transmission Date: 20050211
  Serious: Yes (Other)
  Sender: FDA-Public Use
  Company Number: None

PATIENT
  Age: 86 Year
  Sex: Male
  Weight: 75.2 kg

DRUGS (14)
  1. AUGMENTIN '875' [Suspect]
  2. IPRATROPIUM BROMIDE [Concomitant]
  3. ALBUTEROL [Concomitant]
  4. ACETAMINOPHEN [Concomitant]
  5. DOCUSATE SODIUM [Concomitant]
  6. MILK OF MAGNESIA TAB [Concomitant]
  7. HYDROXYPROPYL METHYCELLULOSE [Concomitant]
  8. ALBUTEROL/IPRATHROPIUM [Concomitant]
  9. TERAZOSIN HCL [Concomitant]
  10. OMEPRAZOLE [Concomitant]
  11. MECLIZINE [Concomitant]
  12. BICALUTAMIDE [Concomitant]
  13. ASPIRIN [Concomitant]
  14. TOLNAFTATE [Concomitant]

REACTIONS (1)
  - RASH [None]
